FAERS Safety Report 5310061-3 (Version None)
Quarter: 2007Q2

REPORT INFORMATION
  Report Type: 
  Country: None (occurrence: None)
  Receive Date: 20070427
  Receipt Date: 20070405
  Transmission Date: 20071010
  Serious: Yes (Hospitalization)
  Sender: FDA-Public Use
  Company Number: FR-GLAXOSMITHKLINE-B0466791A

PATIENT
  Age: 54 Year
  Sex: Female

DRUGS (2)
  1. AVANDAMET [Suspect]
     Dosage: 1TAB TWICE PER DAY
     Route: 048
     Dates: start: 20050301, end: 20050923
  2. ANGIOTENSIN-CONVERTING ENZYME INHIBITOR [Concomitant]
     Indication: HYPERTENSION
     Route: 048

REACTIONS (1)
  - CHEST PAIN [None]
